FAERS Safety Report 7879761-5 (Version None)
Quarter: 2011Q4

REPORT INFORMATION
  Report Type: 
  Country: None (occurrence: None)
  Receive Date: 20111101
  Receipt Date: 20111025
  Transmission Date: 20120403
  Serious: Yes (Death, Hospitalization, Other)
  Sender: FDA-Public Use
  Company Number: US-ELI_LILLY_AND_COMPANY-US201109002541

PATIENT
  Sex: Male
  Weight: 115 kg

DRUGS (3)
  1. LANTUS [Concomitant]
     Dosage: 40 U, EACH EVENING
  2. HUMULIN N [Suspect]
     Indication: TYPE 1 DIABETES MELLITUS
     Dosage: UNK UNK, PRN
  3. HUMALOG [Suspect]
     Indication: TYPE 1 DIABETES MELLITUS
     Dosage: 25 U, TID

REACTIONS (16)
  - SEPSIS [None]
  - FEMUR FRACTURE [None]
  - TYPE V HYPERLIPIDAEMIA [None]
  - RENAL FAILURE CHRONIC [None]
  - MALIGNANT HYPERTENSION [None]
  - DEHYDRATION [None]
  - RENAL HYPERTENSION [None]
  - ANAEMIA OF CHRONIC DISEASE [None]
  - VOMITING [None]
  - HYPOKALAEMIA [None]
  - DIALYSIS [None]
  - CARDIAC ARREST [None]
  - HIP ARTHROPLASTY [None]
  - ORTHOSTATIC HYPOTENSION [None]
  - DIARRHOEA [None]
  - NAUSEA [None]
